FAERS Safety Report 22211688 (Version 1)
Quarter: 2023Q2

REPORT INFORMATION
  Report Type: Spontaneous
  Country: US (occurrence: US)
  Receive Date: 20230414
  Receipt Date: 20230414
  Transmission Date: 20230721
  Serious: No
  Sender: FDA-Public Use
  Company Number: US-PFIZER INC-202300150257

PATIENT
  Age: 82 Year
  Sex: Female
  Weight: 69.4 kg

DRUGS (2)
  1. HYDROCORTISONE [Suspect]
     Active Substance: HYDROCORTISONE
     Dosage: UNK
     Dates: start: 2022
  2. HYDROCORTISONE [Suspect]
     Active Substance: HYDROCORTISONE
     Dosage: UNK
     Dates: start: 2022

REACTIONS (2)
  - Drug ineffective [Unknown]
  - Fatigue [Unknown]
